FAERS Safety Report 13630328 (Version 1)
Quarter: 2017Q2

REPORT INFORMATION
  Report Type: Spontaneous
  Country: US (occurrence: US)
  Receive Date: 20170608
  Receipt Date: 20170608
  Transmission Date: 20170830
  Serious: Yes (Hospitalization)
  Sender: FDA-Public Use
  Company Number: US-VIFOR (INTERNATIONAL) INC.-VIT-2017-00244

PATIENT
  Age: 68 Year
  Sex: Female
  Weight: 123.03 kg

DRUGS (30)
  1. FERROUS SULFATE. [Concomitant]
     Active Substance: FERROUS SULFATE
  2. LEVEMIR [Concomitant]
     Active Substance: INSULIN DETEMIR
  3. MAXIPIME [Concomitant]
     Active Substance: CEFEPIME HYDROCHLORIDE
  4. APRESOLINE HYDROCHLORIDE [Concomitant]
     Active Substance: HYDRALAZINE HYDROCHLORIDE
     Route: 048
  5. VITAMIN D3 [Concomitant]
     Active Substance: CHOLECALCIFEROL
     Route: 048
  6. ALLOPURINOL. [Concomitant]
     Active Substance: ALLOPURINOL
  7. TYLENOL [Concomitant]
     Active Substance: ACETAMINOPHEN
     Route: 048
  8. ACETYLSALICYLIC ACID [Concomitant]
     Active Substance: ASPIRIN
  9. VIBRAMYCIN [Concomitant]
     Active Substance: DOXYCYCLINE
     Route: 048
  10. VELTASSA [Suspect]
     Active Substance: PATIROMER
     Indication: HYPERKALAEMIA
     Route: 065
     Dates: start: 201606
  11. PROCRIT [Concomitant]
     Active Substance: ERYTHROPOIETIN
  12. AMLODIPINE [Concomitant]
     Active Substance: AMLODIPINE BESYLATE
  13. LANTUS [Concomitant]
     Active Substance: INSULIN GLARGINE
     Route: 058
  14. ESOMEPRAZOLE [Concomitant]
     Active Substance: ESOMEPRAZOLE
     Route: 048
  15. CLAVIX [Concomitant]
  16. ROCALTROL [Concomitant]
     Active Substance: CALCITRIOL
     Route: 048
  17. LIPITOR [Concomitant]
     Active Substance: ATORVASTATIN CALCIUM
     Route: 048
  18. HEPARIN [Concomitant]
     Active Substance: HEPARIN SODIUM
     Route: 042
  19. IMDUR [Concomitant]
     Active Substance: ISOSORBIDE MONONITRATE
     Route: 048
  20. ZOFRAN [Concomitant]
     Active Substance: ONDANSETRON HYDROCHLORIDE
     Route: 048
  21. ISOSORBIDE. [Concomitant]
     Active Substance: ISOSORBIDE
  22. HUMALOG [Concomitant]
     Active Substance: INSULIN LISPRO
  23. NOVOLOG [Concomitant]
     Active Substance: INSULIN ASPART
     Route: 058
  24. CATAPRES [Concomitant]
     Active Substance: CLONIDINE HYDROCHLORIDE
     Route: 062
  25. LASIX [Concomitant]
     Active Substance: FUROSEMIDE
     Route: 042
  26. ULTRAM [Concomitant]
     Active Substance: TRAMADOL HYDROCHLORIDE
  27. ACETYLSALICYLIC ACID [Concomitant]
     Active Substance: ASPIRIN
     Route: 048
  28. METOLAZONE. [Concomitant]
     Active Substance: METOLAZONE
  29. HYDRALAZINE [Concomitant]
     Active Substance: HYDRALAZINE HYDROCHLORIDE
  30. COREG [Concomitant]
     Active Substance: CARVEDILOL
     Route: 048

REACTIONS (14)
  - Cardiac failure congestive [Unknown]
  - Oedema peripheral [Unknown]
  - Nephropathy [Unknown]
  - Pneumonia [Unknown]
  - Renal impairment [Unknown]
  - Fluid overload [Unknown]
  - Weight increased [Unknown]
  - Blood pressure increased [Unknown]
  - Asthenia [Unknown]
  - Myocardial ischaemia [Unknown]
  - Pulmonary embolism [Unknown]
  - Nausea [Unknown]
  - Acute myocardial infarction [Unknown]
  - Vomiting [Unknown]

NARRATIVE: CASE EVENT DATE: 201611
